APPROVED DRUG PRODUCT: BROMPHENIRAMINE MALEATE
Active Ingredient: BROMPHENIRAMINE MALEATE
Strength: 2MG/5ML
Dosage Form/Route: ELIXIR;ORAL
Application: A085466 | Product #001
Applicant: KV PHARMACEUTICAL CO
Approved: Approved Prior to Jan 1, 1982 | RLD: No | RS: No | Type: DISCN